FAERS Safety Report 5535182-1 (Version None)
Quarter: 2007Q4

REPORT INFORMATION
  Report Type: 
  Country: None (occurrence: None)
  Receive Date: 20071206
  Receipt Date: 20071127
  Transmission Date: 20080405
  Serious: Yes (Other)
  Sender: FDA-Public Use
  Company Number: US-JNJFOC-20071200751

PATIENT
  Age: 64 Year
  Sex: Male

DRUGS (3)
  1. TYLENOL [Suspect]
  2. TYLENOL [Suspect]
     Indication: TOOTHACHE
     Dosage: UNKNOWN
  3. EXCEDRIN (MIGRAINE) [Suspect]
     Indication: TOOTHACHE

REACTIONS (6)
  - DRUG ADMINISTRATION ERROR [None]
  - LIP SWELLING [None]
  - OEDEMA PERIPHERAL [None]
  - SWELLING FACE [None]
  - SWOLLEN TONGUE [None]
  - TOOTH ABSCESS [None]
